FAERS Safety Report 6086189-X (Version None)
Quarter: 2009Q1

REPORT INFORMATION
  Report Type: 
  Country: None (occurrence: None)
  Receive Date: 20090217
  Receipt Date: 20090217
  Transmission Date: 20090719
  Serious: Yes (Other)
  Sender: FDA-Public Use
  Company Number: None

PATIENT
  Age: 77 Year
  Sex: Female
  Weight: 56.6996 kg

DRUGS (1)
  1. GADOLINIUM UNKNOWN UNKNOWN [Suspect]
     Indication: BONE SCAN
     Dosage: SEE IMAGING NOTES
     Dates: start: 20081023, end: 20081023

REACTIONS (3)
  - BURNING SENSATION [None]
  - MOBILITY DECREASED [None]
  - PAIN IN EXTREMITY [None]
